FAERS Safety Report 5815090-9 (Version None)
Quarter: 2008Q3

REPORT INFORMATION
  Report Type: 
  Country: None (occurrence: None)
  Receive Date: 20080718
  Receipt Date: 20080627
  Transmission Date: 20090109
  Serious: Yes (Other)
  Sender: FDA-Public Use
  Company Number: JP-MERCK-0807USA00680

PATIENT
  Age: 18 Month
  Sex: Male

DRUGS (5)
  1. PERIACTIN [Suspect]
     Route: 048
     Dates: start: 20080618
  2. SINGULAIR [Suspect]
     Indication: ASTHMA
     Route: 048
     Dates: start: 20080618
  3. ASVERIN [Concomitant]
     Route: 065
  4. HOKUNALIN [Concomitant]
     Route: 065
  5. THEOPHYLLINE [Concomitant]
     Route: 065

REACTIONS (3)
  - LOSS OF CONSCIOUSNESS [None]
  - PYREXIA [None]
  - VOMITING [None]
